FAERS Safety Report 6428448-4 (Version None)
Quarter: 2009Q4

REPORT INFORMATION
  Report Type: 
  Country: None (occurrence: None)
  Receive Date: 20091105
  Receipt Date: 20091102
  Transmission Date: 20100525
  Serious: Yes (Hospitalization, Other)
  Sender: FDA-Public Use
  Company Number: B0567649A

PATIENT
  Sex: Female

DRUGS (4)
  1. LAMICTIN [Suspect]
     Indication: EPILEPSY
     Dosage: 50MG PER DAY
     Route: 048
     Dates: start: 20090220, end: 20090305
  2. SEROQUEL [Concomitant]
     Dosage: 200MG PER DAY
     Route: 048
     Dates: start: 20090216, end: 20090330
  3. RIVOTRIL [Concomitant]
     Dosage: 4MG PER DAY
     Route: 048
     Dates: start: 20090216, end: 20090601
  4. VENLAFAXINE [Concomitant]
     Dosage: 75MG PER DAY
     Route: 065
     Dates: start: 20090216, end: 20090401

REACTIONS (5)
  - RALES [None]
  - RASH [None]
  - RASH PRURITIC [None]
  - SKIN LESION [None]
  - STEVENS-JOHNSON SYNDROME [None]
